FAERS Safety Report 20451174 (Version 1)
Quarter: 2022Q1

REPORT INFORMATION
  Report Type: Spontaneous
  Country: US (occurrence: US)
  Receive Date: 20220209
  Receipt Date: 20220209
  Transmission Date: 20220423
  Serious: Yes (Other)
  Sender: FDA-Public Use
  Company Number: US-PFIZER INC-202200150435

PATIENT
  Age: 73 Year
  Sex: Female
  Weight: 62.6 kg

DRUGS (1)
  1. METHOTREXATE SODIUM [Suspect]
     Active Substance: METHOTREXATE SODIUM
     Dosage: UNK

REACTIONS (10)
  - Gastric operation [Unknown]
  - Spinal operation [Unknown]
  - Drug hypersensitivity [Unknown]
  - Urticaria [Unknown]
  - Hand deformity [Unknown]
  - Pain in extremity [Unknown]
  - Therapeutic product effect decreased [Unknown]
  - Injection site pain [Unknown]
  - Diarrhoea [Unknown]
  - Drug ineffective [Unknown]
